FAERS Safety Report 10651332 (Version 2)
Quarter: 2014Q4

REPORT INFORMATION
  Report Type: Spontaneous
  Country: US (occurrence: US)
  Receive Date: 20141215
  Receipt Date: 20141215
  Transmission Date: 20150529
  Serious: No
  Sender: FDA-Public Use
  Company Number: US-TEVA-506850USA

PATIENT
  Sex: Female

DRUGS (1)
  1. ESCITALOPRAM [Suspect]
     Active Substance: ESCITALOPRAM OXALATE
     Indication: DEPRESSION
     Route: 065

REACTIONS (7)
  - Bradyphrenia [Unknown]
  - Depression [Unknown]
  - Drug ineffective [Unknown]
  - Tearfulness [Unknown]
  - Abdominal pain upper [Unknown]
  - Crying [Unknown]
  - Depressed mood [Unknown]
